FAERS Safety Report 5929041-X (Version None)
Quarter: 2008Q4

REPORT INFORMATION
  Report Type: 
  Country: None (occurrence: None)
  Receive Date: 20081024
  Receipt Date: 20081016
  Transmission Date: 20090506
  Serious: Yes (Hospitalization)
  Sender: FDA-Public Use
  Company Number: FR-JNJFOC-20081003825

PATIENT
  Age: 60 Year
  Sex: Female

DRUGS (7)
  1. RISPERDAL [Suspect]
     Indication: SCHIZOPHRENIA, PARANOID TYPE
     Route: 048
  2. TERCIAN [Suspect]
     Indication: DRUG USE FOR UNKNOWN INDICATION
     Route: 048
  3. CLOPIXOL [Suspect]
     Indication: DRUG USE FOR UNKNOWN INDICATION
     Route: 030
  4. HEPTAMYL [Concomitant]
     Route: 048
  5. DEPAKOTE [Concomitant]
     Route: 048
  6. PROCTOLOG [Concomitant]
     Route: 054
  7. NICOPATCH [Concomitant]
     Route: 023

REACTIONS (3)
  - CONFUSIONAL STATE [None]
  - DEEP VEIN THROMBOSIS [None]
  - PULMONARY EMBOLISM [None]
